FAERS Safety Report 15430007 (Version 1)
Quarter: 2018Q3

REPORT INFORMATION
  Report Type: Spontaneous
  Country: US (occurrence: US)
  Receive Date: 20180926
  Receipt Date: 20180926
  Transmission Date: 20181010
  Serious: Yes (Hospitalization, Other)
  Sender: FDA-Public Use
  Company Number: US-SA-2018SA264026

PATIENT
  Age: 60 Year
  Sex: Female

DRUGS (2)
  1. LEMTRADA [Suspect]
     Active Substance: ALEMTUZUMAB
     Dosage: 12 MG, QD
     Route: 041
     Dates: start: 20170918, end: 20170920
  2. LEMTRADA [Suspect]
     Active Substance: ALEMTUZUMAB
     Dosage: UNK UNK, UNK
     Route: 041

REACTIONS (5)
  - Fall [Recovered/Resolved]
  - Stoma site extravasation [Unknown]
  - Sepsis [Unknown]
  - Colectomy [Unknown]
  - Respiratory failure [Recovered/Resolved]

NARRATIVE: CASE EVENT DATE: 2018
